FAERS Safety Report 12850670 (Version 1)
Quarter: 2016Q4

REPORT INFORMATION
  Report Type: Other
  Country: None (occurrence: TR)
  Receive Date: 20161014
  Receipt Date: 20161014
  Transmission Date: 20170207
  Serious: No
  Sender: FDA-Public Use
  Company Number: TR-VISTAPHARM, INC.-1058376

PATIENT
  Age: 48 Year
  Sex: Female

DRUGS (2)
  1. PHENYTOIN. [Suspect]
     Active Substance: PHENYTOIN
  2. CAPECITABINE. [Interacting]
     Active Substance: CAPECITABINE

REACTIONS (5)
  - Anticonvulsant drug level increased [None]
  - Vertigo [Unknown]
  - Depressed level of consciousness [Unknown]
  - Headache [Unknown]
  - Ataxia [Unknown]
